FAERS Safety Report 12983658 (Version 2)
Quarter: 2017Q1

REPORT INFORMATION
  Report Type: Spontaneous
  Country: FR (occurrence: FR)
  Receive Date: 20161129
  Receipt Date: 20170103
  Transmission Date: 20170428
  Serious: Yes (Other)
  Sender: FDA-Public Use
  Company Number: PHHY2016FR162684

PATIENT
  Age: 61 Year
  Sex: Female

DRUGS (1)
  1. ACLASTA [Suspect]
     Active Substance: ZOLEDRONIC ACID
     Indication: OSTEOPOROSIS
     Dosage: 5 MG, (ONE INJECTION, FIRST)
     Route: 042
     Dates: start: 20161118

REACTIONS (9)
  - Iris adhesions [Recovering/Resolving]
  - Uveitis [Recovering/Resolving]
  - Photophobia [Recovering/Resolving]
  - Cataract [Recovering/Resolving]
  - Influenza like illness [Not Recovered/Not Resolved]
  - Eye pain [Recovering/Resolving]
  - Vision blurred [Unknown]
  - Ocular hyperaemia [Recovering/Resolving]
  - Visual acuity reduced [Recovering/Resolving]

NARRATIVE: CASE EVENT DATE: 20161119
